FAERS Safety Report 13678073 (Version 1)
Quarter: 2017Q2

REPORT INFORMATION
  Report Type: Spontaneous
  Country: US (occurrence: US)
  Receive Date: 20170621
  Receipt Date: 20170621
  Transmission Date: 20170830
  Serious: Yes (Other)
  Sender: FDA-Public Use
  Company Number: None

PATIENT
  Age: 65 Year
  Sex: Female
  Weight: 68.1 kg

DRUGS (1)
  1. ROSUVASTATIN 10MG APOTEX CORP [Suspect]
     Active Substance: ROSUVASTATIN
     Indication: BLOOD CHOLESTEROL INCREASED
     Dosage: 10MG QHS PO
     Route: 048
     Dates: start: 20170205, end: 20170617

REACTIONS (5)
  - Muscle spasms [None]
  - Dysphonia [None]
  - Oropharyngeal pain [None]
  - Insomnia [None]
  - Paralysis [None]

NARRATIVE: CASE EVENT DATE: 20170505
